FAERS Safety Report 20841606 (Version 1)
Quarter: 2022Q2

REPORT INFORMATION
  Report Type: Spontaneous
  Country: US (occurrence: US)
  Receive Date: 20220518
  Receipt Date: 20220518
  Transmission Date: 20220721
  Serious: No
  Sender: FDA-Public Use
  Company Number: US-AMGEN-USASP2022081315

PATIENT
  Age: 65 Year
  Sex: Female

DRUGS (3)
  1. PROLIA [Suspect]
     Active Substance: DENOSUMAB
     Indication: Osteoporosis postmenopausal
     Dosage: UNK
     Route: 065
     Dates: start: 20180104
  2. OMEPRAZOLE [Concomitant]
     Active Substance: OMEPRAZOLE
     Indication: Reflux laryngitis
     Dosage: UNK
     Route: 065
  3. COVID-19 vaccine [Concomitant]
     Dosage: UNK

REACTIONS (5)
  - Apicectomy [Unknown]
  - Cystitis [Recovered/Resolved]
  - Tooth infection [Unknown]
  - Plantar fasciitis [Recovered/Resolved]
  - Vertigo positional [Unknown]

NARRATIVE: CASE EVENT DATE: 20180101
